FAERS Safety Report 12569322 (Version 2)
Quarter: 2016Q3

REPORT INFORMATION
  Report Type: Spontaneous
  Country: US (occurrence: US)
  Receive Date: 20160719
  Receipt Date: 20160907
  Transmission Date: 20161109
  Serious: Yes (Life-Threatening, Disabling)
  Sender: FDA-Public Use
  Company Number: PHEH2016US017800

PATIENT
  Age: 78 Year
  Sex: Female
  Weight: 49.44 kg

DRUGS (1)
  1. RECLAST [Suspect]
     Active Substance: ZOLEDRONIC ACID
     Indication: OSTEOPOROSIS
     Dosage: UNK, ONCE/SINGLE
     Route: 042
     Dates: start: 20160608

REACTIONS (3)
  - Atrioventricular block complete [Not Recovered/Not Resolved]
  - Arrhythmia supraventricular [Recovered/Resolved with Sequelae]
  - Heart rate irregular [Unknown]

NARRATIVE: CASE EVENT DATE: 20160610
